FAERS Safety Report 12978109 (Version 1)
Quarter: 2016Q4

REPORT INFORMATION
  Report Type: Spontaneous
  Country: US (occurrence: US)
  Receive Date: 20161126
  Receipt Date: 20161126
  Transmission Date: 20170207
  Serious: Yes (Other)
  Sender: FDA-Public Use
  Company Number: None

PATIENT
  Age: 29 Year
  Sex: Female
  Weight: 94.5 kg

DRUGS (6)
  1. HALDOL [Suspect]
     Active Substance: HALOPERIDOL
     Indication: NEPHROLITHIASIS
     Route: 042
     Dates: start: 20161125, end: 20161125
  2. LABETALOL [Concomitant]
     Active Substance: LABETALOL\LABETALOL HYDROCHLORIDE
  3. METFORMIN [Concomitant]
     Active Substance: METFORMIN HYDROCHLORIDE
  4. PAXIL [Concomitant]
     Active Substance: PAROXETINE HYDROCHLORIDE
  5. JENCYCLA [Concomitant]
     Active Substance: NORETHINDRONE
  6. PRENATAL VITAMIN [Concomitant]
     Active Substance: VITAMINS

REACTIONS (7)
  - Crying [None]
  - Feeling jittery [None]
  - Off label use [None]
  - Agitation [None]
  - Panic disorder [None]
  - Restlessness [None]
  - Feeling abnormal [None]

NARRATIVE: CASE EVENT DATE: 20161125
